FAERS Safety Report 5511215-3 (Version None)
Quarter: 2007Q4

REPORT INFORMATION
  Report Type: 
  Country: None (occurrence: None)
  Receive Date: 20071109
  Receipt Date: 20071031
  Transmission Date: 20080405
  Serious: Yes (Other)
  Sender: FDA-Public Use
  Company Number: FR-JNJFOC-20071100381

PATIENT
  Sex: Male

DRUGS (1)
  1. REMICADE [Suspect]
     Indication: ANKYLOSING SPONDYLITIS
     Dosage: 5TH INFUSION
     Route: 042

REACTIONS (6)
  - ANXIETY [None]
  - BLOOD PRESSURE INCREASED [None]
  - CHEST DISCOMFORT [None]
  - DYSPNOEA [None]
  - INFUSION RELATED REACTION [None]
  - VOMITING [None]
